FAERS Safety Report 4389755-2 (Version None)
Quarter: 2004Q2

REPORT INFORMATION
  Report Type: 
  Country: None (occurrence: None)
  Receive Date: 20040630
  Receipt Date: 20040618
  Transmission Date: 20050107
  Serious: Yes (Death, Life-Threatening)
  Sender: FDA-Public Use
  Company Number: 2004-03-1686

PATIENT
  Age: 65 Year
  Sex: Male
  Weight: 63 kg

DRUGS (14)
  1. INTRON A [Suspect]
     Indication: HEPATITIS C
     Dosage: 10 MU QD INTRAMUSCULAR
     Route: 030
     Dates: start: 20040309, end: 20040321
  2. REBETOL [Suspect]
     Indication: HEPATITIS C
     Dosage: 800 MG ORAL
     Route: 048
     Dates: start: 20040309, end: 20040321
  3. CELESTAMINE TAB [Suspect]
     Indication: PRURITUS
     Dosage: 1 T ORAL
     Route: 048
     Dates: start: 20040316, end: 20040316
  4. VOLTAREN [Concomitant]
  5. ZYRTEC [Concomitant]
  6. ZESULAN TABLETS [Concomitant]
  7. EPINASTINE HCL TABLETS [Concomitant]
  8. MOMETASONE FUROATE CREAM [Concomitant]
  9. EURAX-HYDROCORTISONE [Concomitant]
  10. RINDERON-VG [Concomitant]
  11. MIRACLID [Concomitant]
  12. DOYLE [Concomitant]
  13. ALEVIATIN TABLETS [Concomitant]
  14. DEPAKINE TABLETS [Concomitant]

REACTIONS (10)
  - CARDIO-RESPIRATORY ARREST [None]
  - DISSEMINATED INTRAVASCULAR COAGULATION [None]
  - METABOLIC ACIDOSIS [None]
  - MULTI-ORGAN FAILURE [None]
  - PLATELET COUNT DECREASED [None]
  - RENAL FAILURE ACUTE [None]
  - RHABDOMYOLYSIS [None]
  - SEPSIS [None]
  - THERAPEUTIC RESPONSE DECREASED [None]
  - WHITE BLOOD CELL COUNT DECREASED [None]
